FAERS Safety Report 8802543 (Version 1)
Quarter: 2012Q4

REPORT INFORMATION
  Report Type: 
  Country: US (occurrence: US)
  Receive Date: 20120921
  Receipt Date: 20120921
  Transmission Date: 20130627
  Serious: No
  Sender: FDA-Public Use
  Company Number: US-009507513-1209USA001640

PATIENT
  Age: 79 Year
  Sex: Female

DRUGS (2)
  1. DULERA [Suspect]
     Indication: ASTHMA
     Dosage: UNK UNK, bid
     Dates: start: 201207
  2. CORTISONE [Concomitant]
     Dosage: 5 mg, qd
     Route: 048

REACTIONS (3)
  - Increased upper airway secretion [Not Recovered/Not Resolved]
  - Dysphonia [Unknown]
  - Tremor [Unknown]
